FAERS Safety Report 13034120 (Version 1)
Quarter: 2016Q4

REPORT INFORMATION
  Report Type: Spontaneous
  Country: CO (occurrence: CO)
  Receive Date: 20161216
  Receipt Date: 20161216
  Transmission Date: 20170207
  Serious: Yes (Death)
  Sender: FDA-Public Use
  Company Number: CO-ROCHE-1867073

PATIENT
  Age: 66 Year
  Sex: Male

DRUGS (1)
  1. METALYSE [Suspect]
     Active Substance: TENECTEPLASE
     Indication: MYOCARDIAL INFARCTION
     Route: 065

REACTIONS (4)
  - Respiration abnormal [Fatal]
  - Pulseless electrical activity [Fatal]
  - Altered state of consciousness [Fatal]
  - Cardiac tamponade [Fatal]
